FAERS Safety Report 25937099 (Version 1)
Quarter: 2025Q4

REPORT INFORMATION
  Report Type: Report from Study
  Country: US (occurrence: US)
  Receive Date: 20251017
  Receipt Date: 20251017
  Transmission Date: 20260118
  Serious: Yes (Other)
  Sender: APELLIS PHARMACEUTICALS
  Company Number: US-APELLIS-2025-APL-0001806

PATIENT
  Weight: 47.1 kg

DRUGS (3)
  1. PEGCETACOPLAN [Suspect]
     Active Substance: PEGCETACOPLAN
     Indication: C3 glomerulopathy
     Dosage: 648MG/12ML, TWICE A WEEK
     Route: 058
     Dates: start: 20250922
  2. MYCOPHENOLATE MOFETIL [Concomitant]
     Active Substance: MYCOPHENOLATE MOFETIL
     Indication: C3 glomerulopathy
     Dosage: UNKNOWN
     Dates: start: 202403
  3. LISINOPRIL [Concomitant]
     Active Substance: LISINOPRIL
     Indication: C3 glomerulopathy
     Dosage: UNKNOWN
     Dates: start: 202404

REACTIONS (1)
  - Otitis media [Unknown]

NARRATIVE: CASE EVENT DATE: 20250923
